FAERS Safety Report 8219958-8 (Version None)
Quarter: 2012Q1

REPORT INFORMATION
  Report Type: 
  Country: None (occurrence: None)
  Receive Date: 20120319
  Receipt Date: 20120308
  Transmission Date: 20120608
  Serious: Yes (Other)
  Sender: FDA-Public Use
  Company Number: US-ROCHE-784132

PATIENT
  Sex: Male
  Weight: 72.64 kg

DRUGS (2)
  1. ACCUTANE [Suspect]
     Route: 065
     Dates: start: 19950420, end: 19950906
  2. ACCUTANE [Suspect]
     Indication: ACNE
     Route: 065
     Dates: start: 19940421, end: 19940914

REACTIONS (5)
  - INFLAMMATORY BOWEL DISEASE [None]
  - DRY EYE [None]
  - STRESS [None]
  - DEPRESSION [None]
  - COLITIS ULCERATIVE [None]
